FAERS Safety Report 6446889-6 (Version None)
Quarter: 2009Q4

REPORT INFORMATION
  Report Type: 
  Country: None (occurrence: None)
  Receive Date: 20091119
  Receipt Date: 20091110
  Transmission Date: 20100525
  Serious: Yes (Other)
  Sender: FDA-Public Use
  Company Number: GB-JNJFOC-20091103077

PATIENT
  Age: 78 Year
  Sex: Female
  Weight: 107 kg

DRUGS (7)
  1. REMICADE [Suspect]
     Indication: RHEUMATOID ARTHRITIS
     Dosage: DOSE: ^321^
     Route: 042
     Dates: start: 20050223
  2. METHOTREXATE [Concomitant]
  3. CALCICHEW [Concomitant]
  4. FISH OIL [Concomitant]
  5. FOLIC ACID [Concomitant]
  6. SELENIUM [Concomitant]
  7. TRAMADOL [Concomitant]

REACTIONS (1)
  - ANAL CANCER [None]
